FAERS Safety Report 19596003 (Version 2)
Quarter: 2021Q3

REPORT INFORMATION
  Report Type: Spontaneous
  Country: IE (occurrence: IE)
  Receive Date: 20210723
  Receipt Date: 20210810
  Transmission Date: 20211014
  Serious: Yes (Hospitalization, Other)
  Sender: FDA-Public Use
  Company Number: IE-ALKEM LABORATORIES LIMITED-IE-ALKEM-2021-04497

PATIENT
  Age: 59 Year
  Sex: Female

DRUGS (3)
  1. MYCOPHENOLATE MOFETIL. [Suspect]
     Active Substance: MYCOPHENOLATE MOFETIL
     Indication: PRODUCT USED FOR UNKNOWN INDICATION
     Dosage: UNK
     Route: 065
  2. TACROLIMUS. [Suspect]
     Active Substance: TACROLIMUS
     Indication: PRODUCT USED FOR UNKNOWN INDICATION
     Dosage: UNK
     Route: 065
  3. FLUCONAZOLE. [Suspect]
     Active Substance: FLUCONAZOLE
     Indication: ANTIFUNGAL TREATMENT
     Dosage: UNK
     Route: 048

REACTIONS (11)
  - Fungaemia [Unknown]
  - Pulmonary embolism [Unknown]
  - Sepsis [Unknown]
  - Drug interaction [Unknown]
  - Decreased appetite [Unknown]
  - Urinary tract infection [Recovered/Resolved]
  - Toxicity to various agents [Unknown]
  - Confusional state [Unknown]
  - Fall [Unknown]
  - Disseminated intravascular coagulation [Unknown]
  - Depressed mood [Unknown]
